FAERS Safety Report 22588219 (Version 1)
Quarter: 2023Q2

REPORT INFORMATION
  Report Type: Spontaneous
  Country: IN (occurrence: IN)
  Receive Date: 20230612
  Receipt Date: 20230612
  Transmission Date: 20230722
  Serious: Yes (Other)
  Sender: FDA-Public Use
  Company Number: IN-CADILA HEALTHCARE LIMITED-IN-ZYDUS-094117

PATIENT

DRUGS (1)
  1. AZATHIOPRINE [Suspect]
     Active Substance: AZATHIOPRINE
     Indication: Dermatitis
     Dosage: 50 MILLIGRAM, QD
     Route: 065

REACTIONS (3)
  - Hair disorder [Unknown]
  - Diffuse alopecia [Unknown]
  - Myelosuppression [Unknown]
